FAERS Safety Report 9511091 (Version 1)
Quarter: 2013Q3

REPORT INFORMATION
  Report Type: Spontaneous
  Country: US (occurrence: None)
  Receive Date: 20130905
  Receipt Date: 20130905
  Transmission Date: 20140515
  Serious: Yes (Death)
  Sender: FDA-Public Use
  Company Number: SP06966

PATIENT
  Age: 84 Year
  Sex: Male

DRUGS (1)
  1. XIFAXAN [Suspect]
     Route: 048

REACTIONS (1)
  - Death [None]
